FAERS Safety Report 8295647-9 (Version None)
Quarter: 2012Q2

REPORT INFORMATION
  Report Type: 
  Country: None (occurrence: None)
  Receive Date: 20120418
  Receipt Date: 20120412
  Transmission Date: 20120825
  Serious: Yes (Hospitalization, Disabling)
  Sender: FDA-Public Use
  Company Number: US-MERCK-1202USA02446

PATIENT
  Age: 46 Year
  Sex: Female

DRUGS (2)
  1. FOSAMAX [Suspect]
     Indication: OSTEOPENIA
     Route: 048
     Dates: start: 19950101, end: 20080101
  2. VITAMINS (UNSPECIFIED) [Concomitant]
     Route: 065
     Dates: start: 19840101

REACTIONS (8)
  - GASTROOESOPHAGEAL REFLUX DISEASE [None]
  - FAECALOMA [None]
  - ANXIETY [None]
  - DEPRESSION [None]
  - LOW TURNOVER OSTEOPATHY [None]
  - INTERVERTEBRAL DISC PROTRUSION [None]
  - FEMUR FRACTURE [None]
  - ABDOMINAL PAIN [None]
